FAERS Safety Report 9799447 (Version 2)
Quarter: 2014Q1

REPORT INFORMATION
  Report Type: Spontaneous
  Country: US (occurrence: None)
  Receive Date: 20131231
  Receipt Date: 20140220
  Transmission Date: 20141002
  Serious: Yes (Hospitalization)
  Sender: FDA-Public Use
  Company Number: AUR-APL-2013-10819

PATIENT
  Age: 41 Year
  Sex: Male

DRUGS (8)
  1. CYCLOBENZAPRINE [Suspect]
     Indication: SCHIZOPHRENIA, PARANOID TYPE
  2. OLANZAPINE (OLANZAPINE) [Suspect]
     Indication: SCHIZOPHRENIA, PARANOID TYPE
  3. RISPERIDONE [Suspect]
     Indication: SCHIZOPHRENIA, PARANOID TYPE
  4. ZOLPIDEM (ZOLPIDEM) [Suspect]
     Indication: SCHIZOPHRENIA, PARANOID TYPE
  5. BENZTROPINE [Suspect]
     Indication: SCHIZOPHRENIA, PARANOID TYPE
     Dosage: (1 MG, 2 IN 1 D)
  6. LORAZEPAM (LORAZEPAM) [Suspect]
     Indication: SCHIZOPHRENIA, PARANOID TYPE
     Dosage: 1 MG, 3 IN 1 D
  7. AMPHETAMINE [Suspect]
     Indication: SCHIZOPHRENIA, PARANOID TYPE
     Dosage: 10 MG, 1 IN 1 D
  8. DEXTROAMPHETAMINE [Suspect]
     Indication: SCHIZOPHRENIA, PARANOID TYPE
     Dosage: (10 MG, 1 IN 1 D)

REACTIONS (4)
  - Parkinson^s disease [None]
  - Psychotic disorder [None]
  - Irritability [None]
  - Tachycardia [None]
